FAERS Safety Report 7444566-6 (Version None)
Quarter: 2011Q2

REPORT INFORMATION
  Report Type: 
  Country: None (occurrence: None)
  Receive Date: 20110426
  Receipt Date: 20110426
  Transmission Date: 20111010
  Serious: Yes (Life-Threatening, Hospitalization)
  Sender: FDA-Public Use
  Company Number: None

PATIENT
  Age: 27 Year
  Sex: Female
  Weight: 65.318 kg

DRUGS (1)
  1. DROSPIRENONE AND ETHINYL ESTRADIOL [Suspect]
     Indication: CONTRACEPTION
     Dosage: REGULAR DOSE DAILY PO
     Route: 048
     Dates: start: 20091001, end: 20110310

REACTIONS (5)
  - BONE PAIN [None]
  - PULMONARY EMBOLISM [None]
  - MYALGIA [None]
  - INSOMNIA [None]
  - PULMONARY OEDEMA [None]
